FAERS Safety Report 17842349 (Version 1)
Quarter: 2020Q2

REPORT INFORMATION
  Report Type: Spontaneous
  Country: US (occurrence: US)
  Receive Date: 20200529
  Receipt Date: 20200529
  Transmission Date: 20200714
  Serious: No
  Sender: FDA-Public Use
  Company Number: US-B.I. PHARMACEUTICALS,INC./RIDGEFIELD-2020-US-026559

PATIENT
  Sex: Male

DRUGS (2)
  1. MOBIC [Suspect]
     Active Substance: MELOXICAM
     Indication: SPINAL OSTEOARTHRITIS
     Dosage: 15MG PO ONCE A DAY
     Route: 048
     Dates: start: 2019, end: 202004
  2. MOBIC [Suspect]
     Active Substance: MELOXICAM
     Dosage: 7.5MG PO ONCE A DAY
     Route: 048
     Dates: start: 202004, end: 202005

REACTIONS (1)
  - Renal impairment [Unknown]

NARRATIVE: CASE EVENT DATE: 202004
